FAERS Safety Report 5296397-3 (Version None)
Quarter: 2007Q2

REPORT INFORMATION
  Report Type: 
  Country: None (occurrence: None)
  Receive Date: 20070413
  Receipt Date: 20070403
  Transmission Date: 20071010
  Serious: Yes (Death)
  Sender: FDA-Public Use
  Company Number: AU-ROCHE-491129

PATIENT
  Age: 80 Year
  Sex: Male

DRUGS (5)
  1. KETOROLAC TROMETHAMINE [Suspect]
     Indication: ARTHRITIS
     Route: 030
     Dates: start: 20061216, end: 20061216
  2. IBUPROFEN [Concomitant]
  3. MICARDIS HCT [Concomitant]
  4. NEXIUM [Concomitant]
  5. LIPITOR [Concomitant]

REACTIONS (3)
  - MYOCARDIAL INFARCTION [None]
  - OLIGURIA [None]
  - RENAL FAILURE ACUTE [None]
